FAERS Safety Report 17768600 (Version 1)
Quarter: 2020Q2

REPORT INFORMATION
  Report Type: Spontaneous
  Country: BE (occurrence: BE)
  Receive Date: 20200512
  Receipt Date: 20200512
  Transmission Date: 20200714
  Serious: Yes (Hospitalization)
  Sender: FDA-Public Use
  Company Number: BE-SUN PHARMACEUTICAL INDUSTRIES LTD-2020RR-246694

PATIENT
  Sex: Female
  Weight: 56 kg

DRUGS (11)
  1. L-THYROXINE CHRISTIAENS [Concomitant]
     Active Substance: LEVOTHYROXINE
     Indication: PRODUCT USED FOR UNKNOWN INDICATION
     Dosage: BEFORE 21/11/19 : 75 ?G/DAY21/11/19: 50 ?G/DAY11/12/19: 75 ?G/DAY03/01/20: 100 ?G/DAY
     Route: 048
  2. BUSCOPAN [Concomitant]
     Active Substance: BUTYLSCOPOLAMINE BROMIDE
     Indication: PRODUCT USED FOR UNKNOWN INDICATION
     Dosage: SELFMEDICATION: DEPENDING ON SYMPTOMS ()
     Route: 065
  3. PANTOMED 40 MG [Concomitant]
     Active Substance: PANTOPRAZOLE SODIUM
     Indication: PRODUCT USED FOR UNKNOWN INDICATION
     Dosage: 1 DOSAGE FORM, DAILY
     Route: 048
  4. LACLIMELLA 1 MG/2 MG [Concomitant]
     Indication: PRODUCT USED FOR UNKNOWN INDICATION
     Dosage: 1 DOSAGE FORM, DAILY
     Route: 048
  5. AMLOR [Concomitant]
     Active Substance: AMLODIPINE BESYLATE
     Indication: PRODUCT USED FOR UNKNOWN INDICATION
     Dosage: 10/2019: 5 MG/DAY3/01/2020: 10MG/DAY
     Route: 048
  6. LENVIMA [Suspect]
     Active Substance: LENVATINIB
     Indication: PAPILLARY THYROID CANCER
     Dosage: 15/10/19: 24 MG 1X/DAY (2 CAPSULES OF 10MG + 1 CAPSULE OF 4MG)21/10/19: 20 MG 1X/DAY (2 CAPSULES...
     Route: 048
     Dates: start: 20191015, end: 20200121
  7. IMODIUM [Concomitant]
     Active Substance: LOPERAMIDE HYDROCHLORIDE
     Indication: PRODUCT USED FOR UNKNOWN INDICATION
     Dosage: SELFMEDICATION: DEPENDING ON SYMPTOMS ()
     Route: 065
  8. BRUFEN [Concomitant]
     Active Substance: IBUPROFEN
     Indication: PRODUCT USED FOR UNKNOWN INDICATION
     Dosage: SELFMEDICATION: DEPENDING ON SYMPTOMS ()
     Route: 065
  9. ATORVASTATIN [Suspect]
     Active Substance: ATORVASTATIN
     Indication: PRODUCT USED FOR UNKNOWN INDICATION
     Dosage: TAKEN IN THE EVENING
     Route: 048
  10. LENVIMA [Suspect]
     Active Substance: LENVATINIB
     Indication: PAPILLARY THYROID CANCER
     Dosage: 15/10/19: 24 MG 1X/DAY (2 CAPSULES OF 10MG + 1 CAPSULE OF 4MG)21/10/19: 20 MG 1X/DAY (2 CAPSULES...
     Route: 048
     Dates: start: 20191015, end: 20200121
  11. NOBITEN 5 MG [Concomitant]
     Indication: PRODUCT USED FOR UNKNOWN INDICATION
     Dosage: 1 DOSAGE FORM, DAILY
     Route: 048

REACTIONS (1)
  - Pancreatitis acute [Recovering/Resolving]

NARRATIVE: CASE EVENT DATE: 20200121
